FAERS Safety Report 6248967-3 (Version None)
Quarter: 2009Q2

REPORT INFORMATION
  Report Type: 
  Country: None (occurrence: None)
  Receive Date: 20090625
  Receipt Date: 20090618
  Transmission Date: 20091009
  Serious: Yes (Other)
  Sender: FDA-Public Use
  Company Number: 2009S1000205

PATIENT
  Age: 58 Year
  Sex: Female

DRUGS (5)
  1. SORIATANE [Suspect]
     Indication: DRUG USE FOR UNKNOWN INDICATION
     Dosage: 25 MG; QD; PO
     Route: 048
     Dates: start: 20081122, end: 20090501
  2. PROZAC [Concomitant]
  3. ASPIRIN [Concomitant]
  4. TOPROL-XL [Concomitant]
  5. MINOCYCLINE HCL [Concomitant]

REACTIONS (1)
  - DIABETES MELLITUS [None]
